FAERS Safety Report 9053969 (Version 1)
Quarter: 2013Q1

REPORT INFORMATION
  Report Type: Spontaneous
  Country: US (occurrence: None)
  Receive Date: 20130201
  Receipt Date: 20130201
  Transmission Date: 20140127
  Serious: Yes (Hospitalization)
  Sender: FDA-Public Use
  Company Number: None

PATIENT
  Age: 82 Year
  Sex: Male
  Weight: 78.6 kg

DRUGS (2)
  1. WARFARIN [Suspect]
     Route: 048
     Dates: start: 20121223, end: 20130114
  2. ENOXAPARIN [Suspect]
     Dates: start: 20121223, end: 20130114

REACTIONS (3)
  - Extremity necrosis [None]
  - International normalised ratio increased [None]
  - Haematuria [None]
